FAERS Safety Report 21238214 (Version 1)
Quarter: 2022Q3

REPORT INFORMATION
  Report Type: Spontaneous
  Country: US (occurrence: US)
  Receive Date: 20220822
  Receipt Date: 20220822
  Transmission Date: 20221026
  Serious: No
  Sender: FDA-Public Use
  Company Number: US-BRISTOL-MYERS SQUIBB COMPANY-2022-092225

PATIENT
  Age: 67 Year
  Sex: Male

DRUGS (1)
  1. REVLIMID [Suspect]
     Active Substance: LENALIDOMIDE
     Indication: Plasma cell myeloma
     Dosage: DAILY ON DAYS 1-21 OF EACH 28 DAY CYCLE
     Route: 048
     Dates: start: 20200716

REACTIONS (4)
  - Gastrointestinal disorder [Unknown]
  - Metamorphopsia [Unknown]
  - Diarrhoea [Unknown]
  - Lice infestation [Unknown]
